FAERS Safety Report 7705479-5 (Version None)
Quarter: 2011Q3

REPORT INFORMATION
  Report Type: 
  Country: None (occurrence: None)
  Receive Date: 20110824
  Receipt Date: 20110816
  Transmission Date: 20111222
  Serious: Yes (Other)
  Sender: FDA-Public Use
  Company Number: US-ASTELLAS-2011US005059

PATIENT
  Age: 57 Year
  Sex: Female
  Weight: 131 kg

DRUGS (9)
  1. VESICARE [Suspect]
     Indication: URINARY INCONTINENCE
     Dosage: 10 MG, UID/QD
     Route: 048
  2. FESOTERODINE [Suspect]
     Indication: URINARY INCONTINENCE
     Dosage: DAILY
     Route: 048
     Dates: start: 20110522, end: 20110612
  3. OXYBUTYNIN [Concomitant]
     Indication: URINARY INCONTINENCE
     Dosage: 15 MG, UID/QD
     Route: 048
     Dates: start: 20060101, end: 20110423
  4. ENABLEX [Suspect]
     Indication: PRODUCT USED FOR UNKNOWN INDICATION
     Dosage: UNK
     Route: 065
  5. CLOBETASOL PROPIONATE [Concomitant]
     Indication: SKIN DISORDER
     Dosage: UNK
     Route: 065
  6. OXYBUTYNIN [Concomitant]
     Dosage: 15 MG, UID/QD
     Route: 048
     Dates: start: 20110703
  7. BUMEX [Concomitant]
     Indication: OEDEMA PERIPHERAL
     Dosage: 1 MG, UID/QD
     Route: 065
  8. LASIX [Concomitant]
     Indication: OEDEMA PERIPHERAL
     Dosage: 40 MG, BID
     Route: 065
  9. POTASSIUM CHLORIDE [Concomitant]
     Indication: PRODUCT USED FOR UNKNOWN INDICATION
     Dosage: 3.5 DF, UID/QD
     Route: 048

REACTIONS (5)
  - BACK DISORDER [None]
  - BLOOD POTASSIUM DECREASED [None]
  - ARTHRALGIA [None]
  - ARTHROPATHY [None]
  - SKIN DISORDER [None]
